FAERS Safety Report 25018179 (Version 2)
Quarter: 2025Q2

REPORT INFORMATION
  Report Type: Spontaneous
  Country: RU (occurrence: RU)
  Receive Date: 20250227
  Receipt Date: 20250505
  Transmission Date: 20250717
  Serious: Yes (Other)
  Sender: NOVARTIS
  Company Number: RU-002147023-NVSC2025RU033075

PATIENT
  Sex: Female

DRUGS (1)
  1. SECUKINUMAB [Suspect]
     Active Substance: SECUKINUMAB
     Indication: Product used for unknown indication
     Route: 050

REACTIONS (2)
  - Iridocyclitis [Unknown]
  - Arthropathy [Unknown]
